FAERS Safety Report 8645728 (Version 4)
Quarter: 2013Q2

REPORT INFORMATION
  Report Type: Report from Study
  Country: CA (occurrence: CA)
  Receive Date: 20120702
  Receipt Date: 20130502
  Transmission Date: 20140414
  Serious: Yes (Other)
  Sender: FDA-Public Use
  Company Number: CA-UCBSA-054122

PATIENT
  Age: 51 Year
  Sex: Female

DRUGS (4)
  1. CIMZIA [Suspect]
     Indication: RHEUMATOID ARTHRITIS
     Route: 058
     Dates: start: 20120430, end: 20120625
  2. CIMZIA [Suspect]
     Indication: RHEUMATOID ARTHRITIS
     Route: 058
     Dates: start: 20120319, end: 20120416
  3. L THYROXINE [Concomitant]
     Indication: HYPOTHYROIDISM
     Route: 048
  4. VITAMIN D [Concomitant]
     Dates: end: 2012

REACTIONS (4)
  - Psoriasis [Not Recovered/Not Resolved]
  - Purpura [Not Recovered/Not Resolved]
  - Vasculitis [Unknown]
  - Injection site discolouration [Recovered/Resolved]
